FAERS Safety Report 22104800 (Version 1)
Quarter: 2023Q1

REPORT INFORMATION
  Report Type: Spontaneous
  Country: US (occurrence: US)
  Receive Date: 20230316
  Receipt Date: 20230316
  Transmission Date: 20230417
  Serious: Yes (Other)
  Sender: FDA-Public Use
  Company Number: US-ANIPHARMA-2023-US-006140

PATIENT
  Sex: Male

DRUGS (13)
  1. CORTICOTROPIN [Suspect]
     Active Substance: CORTICOTROPIN
     Indication: Sarcoidosis
     Dosage: INJECT 80 UNITS (1ML) SUBCUTANEOUSLY TWICE WEEKLY
     Route: 030
  2. OMEPRAZOLE [Concomitant]
     Active Substance: OMEPRAZOLE
  3. FAMOTIDINE [Concomitant]
     Active Substance: FAMOTIDINE
  4. REMICADE [Concomitant]
     Active Substance: INFLIXIMAB
  5. BENZONATATE [Concomitant]
     Active Substance: BENZONATATE
  6. ADVAIR DISKUS [Concomitant]
     Active Substance: FLUTICASONE PROPIONATE\SALMETEROL XINAFOATE
  7. IPRATROPIUM BROMIDE/ALBUT [Concomitant]
  8. PREDNISONE [Concomitant]
     Active Substance: PREDNISONE
  9. HERBALS [Concomitant]
     Active Substance: HERBALS
  10. VITAMIN C [Concomitant]
     Active Substance: ASCORBIC ACID
  11. GABAPENTIN [Concomitant]
     Active Substance: GABAPENTIN
  12. HYDROXYCHLOROQUINE SULFATE [Concomitant]
     Active Substance: HYDROXYCHLOROQUINE SULFATE
  13. OFEV [Concomitant]
     Active Substance: NINTEDANIB

REACTIONS (7)
  - Stomatitis [Unknown]
  - Oropharyngeal pain [Unknown]
  - Peripheral swelling [Unknown]
  - Joint swelling [Unknown]
  - Pulmonary hypertension [Unknown]
  - Swelling face [Unknown]
  - Erythema [Unknown]
